FAERS Safety Report 14154035 (Version 1)
Quarter: 2017Q4

REPORT INFORMATION
  Report Type: Spontaneous
  Country: US (occurrence: US)
  Receive Date: 20171102
  Receipt Date: 20171102
  Transmission Date: 20180321
  Serious: Yes (Hospitalization, Other)
  Sender: FDA-Public Use
  Company Number: US-DSJP-DSU-2017-138614

PATIENT

DRUGS (1)
  1. BENICAR [Suspect]
     Active Substance: OLMESARTAN MEDOXOMIL
     Indication: HYPERTENSION
     Dosage: 20 MG, QD
     Route: 048
     Dates: start: 20070711, end: 20141031

REACTIONS (12)
  - Diverticulum [Not Recovered/Not Resolved]
  - Delirium [Recovering/Resolving]
  - Constipation [Not Recovered/Not Resolved]
  - Haemorrhoids [Not Recovered/Not Resolved]
  - Hiatus hernia [Unknown]
  - Large intestine polyp [Recovered/Resolved]
  - Diverticulitis [Unknown]
  - Malabsorption [Recovering/Resolving]
  - Acute kidney injury [Recovering/Resolving]
  - Impaired gastric emptying [Unknown]
  - Barrett^s oesophagus [Unknown]
  - Disorganised speech [Recovering/Resolving]

NARRATIVE: CASE EVENT DATE: 20080430
